FAERS Safety Report 13477399 (Version 2)
Quarter: 2017Q2

REPORT INFORMATION
  Report Type: Spontaneous
  Country: IT (occurrence: IT)
  Receive Date: 20170425
  Receipt Date: 20170428
  Transmission Date: 20170830
  Serious: Yes (Other)
  Sender: FDA-Public Use
  Company Number: IT-TEVA-763178ACC

PATIENT
  Age: 35 Year
  Sex: Male

DRUGS (2)
  1. IBUPROFEN. [Suspect]
     Active Substance: IBUPROFEN
     Dosage: 1200 MILLIGRAM DAILY;
     Route: 048
     Dates: start: 20160317, end: 20160322
  2. NAPROXEN. [Suspect]
     Active Substance: NAPROXEN
     Dosage: 1650 MILLIGRAM DAILY;
     Route: 048
     Dates: start: 20160319, end: 20160322

REACTIONS (1)
  - Muscle haemorrhage [Unknown]

NARRATIVE: CASE EVENT DATE: 20160320
